FAERS Safety Report 18362449 (Version 8)
Quarter: 2022Q3

REPORT INFORMATION
  Report Type: Report from Study
  Country: CO (occurrence: CO)
  Receive Date: 20201008
  Receipt Date: 20220803
  Transmission Date: 20221027
  Serious: Yes (Disabling, Other)
  Sender: FDA-Public Use
  Company Number: PHHY2018CO003635

PATIENT
  Age: 76 Year
  Sex: Male
  Weight: 82 kg

DRUGS (9)
  1. AFINITOR [Suspect]
     Active Substance: EVEROLIMUS
     Indication: Neuroendocrine tumour
     Dosage: 10 MG, QD
     Route: 048
     Dates: start: 20180801
  2. AFINITOR [Suspect]
     Active Substance: EVEROLIMUS
     Dosage: 5 MG, QD
     Route: 048
  3. SANDOSTATIN LAR DEPOT [Suspect]
     Active Substance: OCTREOTIDE ACETATE
     Indication: Neuroendocrine tumour
     Dosage: 30 MG, QMO (AMPOULE)
     Route: 030
     Dates: start: 20170314, end: 20180301
  4. SANDOSTATIN LAR DEPOT [Suspect]
     Active Substance: OCTREOTIDE ACETATE
     Dosage: 30 MG, Q4W (EVERY 28 DAYS)
     Route: 030
  5. SANDOSTATIN LAR DEPOT [Suspect]
     Active Substance: OCTREOTIDE ACETATE
  6. INSULIN GLARGINE [Concomitant]
     Active Substance: INSULIN GLARGINE
     Indication: Product used for unknown indication
     Dosage: UNK
     Route: 065
  7. CARBAMAZEPINE [Concomitant]
     Active Substance: CARBAMAZEPINE
     Indication: Product used for unknown indication
     Dosage: 200 MG, QD
     Route: 048
  8. AMLODIPINE [Concomitant]
     Active Substance: AMLODIPINE BESYLATE
     Indication: Product used for unknown indication
     Dosage: 5 MG, QD
     Route: 048
  9. QUINAPRIL [Concomitant]
     Active Substance: QUINAPRIL
     Indication: Blood pressure increased
     Dosage: 20 MG, QD
     Route: 048

REACTIONS (25)
  - Neuroendocrine tumour [Not Recovered/Not Resolved]
  - Malignant neoplasm progression [Not Recovered/Not Resolved]
  - Skin necrosis [Unknown]
  - Necrosis [Unknown]
  - Skin discolouration [Unknown]
  - Decreased immune responsiveness [Unknown]
  - Drug intolerance [Unknown]
  - Acne [Unknown]
  - Pruritus [Unknown]
  - Stomatitis [Unknown]
  - Weight decreased [Unknown]
  - Decreased appetite [Unknown]
  - Dry skin [Recovering/Resolving]
  - Pain [Unknown]
  - Sleep disorder [Unknown]
  - Hyperhidrosis [Unknown]
  - Chromaturia [Unknown]
  - Somnolence [Unknown]
  - Dizziness [Not Recovered/Not Resolved]
  - Skin ulcer [Unknown]
  - Burning sensation [Unknown]
  - Dysstasia [Unknown]
  - Gait disturbance [Unknown]
  - Influenza [Unknown]
  - Urticaria [Unknown]

NARRATIVE: CASE EVENT DATE: 20180301
